FAERS Safety Report 6869255-8 (Version None)
Quarter: 2010Q3

REPORT INFORMATION
  Report Type: 
  Country: None (occurrence: None)
  Receive Date: 20100722
  Receipt Date: 20080715
  Transmission Date: 20110219
  Serious: Yes (Other)
  Sender: FDA-Public Use
  Company Number: US-PFIZER INC-2008060442

PATIENT
  Sex: Female
  Weight: 90.7 kg

DRUGS (2)
  1. CHANTIX [Suspect]
     Indication: SMOKING CESSATION THERAPY
     Dates: start: 20080301, end: 20080526
  2. PREDNISONE TAB [Suspect]
     Indication: ASTHMA
     Dates: start: 20080501

REACTIONS (3)
  - ASTHMA [None]
  - BLOOD TEST ABNORMAL [None]
  - MALAISE [None]
